FAERS Safety Report 4510961-8 (Version None)
Quarter: 2004Q4

REPORT INFORMATION
  Report Type: 
  Country: None (occurrence: None)
  Receive Date: 20040928
  Receipt Date: 20040607
  Transmission Date: 20050328
  Serious: No
  Sender: FDA-Public Use
  Company Number: 04P-163-0263004-00

PATIENT
  Age: 54 Year
  Sex: Female
  Weight: 74.8435 kg

DRUGS (18)
  1. HUMIRA [Suspect]
     Indication: RHEUMATOID ARTHRITIS
     Dosage: 40 MG, 1 IN 2 WK, SUBCUTANEOUS
     Route: 058
     Dates: start: 20040525
  2. HYDROXYCHLOROQUINE PHOSPHATE [Concomitant]
  3. NORTRIPTYLINE HCL [Concomitant]
  4. ROFECOXIB [Concomitant]
  5. CYCLOBENZAPRINE [Concomitant]
  6. CARISOPRODOL [Concomitant]
  7. OXYBUTYNIN [Concomitant]
  8. PAROXETINE HYDROCHLORIDE [Concomitant]
  9. AXOTAL [Concomitant]
  10. RANITIDINE HYDROCHLORIDE [Concomitant]
  11. TOPIRMATE [Concomitant]
  12. GABAPENTIN [Concomitant]
  13. PROPACET 100 [Concomitant]
  14. ALLEGRA-D [Concomitant]
  15. ATENOLOL [Concomitant]
  16. MULTI-VITAMINS [Concomitant]
  17. ASPIRIN [Concomitant]
  18. POTASSIUM [Concomitant]

REACTIONS (1)
  - ABDOMINAL PAIN [None]
